FAERS Safety Report 9940517 (Version 1)
Quarter: 2014Q1

REPORT INFORMATION
  Report Type: Other
  Country: FR (occurrence: FR)
  Receive Date: 20140303
  Receipt Date: 20140303
  Transmission Date: 20141002
  Serious: Yes (Hospitalization)
  Sender: FDA-Public Use
  Company Number: FR-MPIJNJ-2014JNJ000452

PATIENT
  Sex: 0

DRUGS (16)
  1. VELCADE [Suspect]
     Dosage: UNK
     Dates: start: 20131118
  2. DECAPEPTYL /00486501/ [Suspect]
     Indication: PROSTATE CANCER RECURRENT
     Dosage: 22.5 MG, UNK
     Route: 065
     Dates: start: 200805, end: 20130213
  3. CORTANCYL [Concomitant]
     Indication: PLASMA CELL MYELOMA
  4. ALKERAN                            /00006401/ [Concomitant]
     Indication: PLASMA CELL MYELOMA
  5. MOPRAL                             /00661201/ [Concomitant]
  6. OXYCONTIN [Concomitant]
  7. OXYNORM [Concomitant]
  8. RETACRIT [Concomitant]
     Indication: ANAEMIA
     Dosage: UNK
     Dates: start: 201306, end: 201307
  9. COTAREG [Concomitant]
  10. PARACETAMOL [Concomitant]
  11. TRANSIPEG                          /00754501/ [Concomitant]
  12. LANSOYL [Concomitant]
  13. ZELITREX [Concomitant]
  14. ATHYMIL [Concomitant]
  15. GAVISCON                           /00237601/ [Concomitant]
  16. VELCADE [Suspect]
     Indication: PLASMA CELL MYELOMA
     Dosage: 2.3 MG, UNK
     Route: 058
     Dates: start: 20130412, end: 20131007

REACTIONS (5)
  - Hyperhidrosis [Recovered/Resolved]
  - Night sweats [Recovered/Resolved]
  - Back pain [Unknown]
  - Pain in extremity [Unknown]
  - Paraesthesia [Unknown]
